FAERS Safety Report 6069284-0 (Version None)
Quarter: 2009Q1

REPORT INFORMATION
  Report Type: 
  Country: None (occurrence: None)
  Receive Date: 20090206
  Receipt Date: 20090129
  Transmission Date: 20090719
  Serious: Yes (Disabling)
  Sender: FDA-Public Use
  Company Number: GB-PFIZER INC-2009162213

PATIENT

DRUGS (2)
  1. ATORVASTATIN CALCIUM [Suspect]
     Indication: BLOOD TRIGLYCERIDES INCREASED
     Dosage: 20 MG, UNK
     Route: 048
     Dates: start: 20081201, end: 20081230
  2. SIMVASTATIN [Suspect]
     Indication: BLOOD TRIGLYCERIDES INCREASED
     Dosage: 40 MG, UNK
     Route: 048
     Dates: start: 20081101, end: 20081201

REACTIONS (5)
  - ABNORMAL DREAMS [None]
  - HYPERSOMNIA [None]
  - LISTLESS [None]
  - PRURITUS [None]
  - SKIN EXFOLIATION [None]
